FAERS Safety Report 23564353 (Version 2)
Quarter: 2024Q1

REPORT INFORMATION
  Report Type: Spontaneous
  Country: KR (occurrence: KR)
  Receive Date: 20240226
  Receipt Date: 20240229
  Transmission Date: 20240410
  Serious: Yes (Hospitalization, Other)
  Sender: FDA-Public Use
  Company Number: None

PATIENT
  Age: 8 Year
  Sex: Female
  Weight: 34.5 kg

DRUGS (3)
  1. NAPROXEN [Suspect]
     Active Substance: NAPROXEN
     Indication: Abdominal pain
     Dosage: 375 MILLIGRAM, EVERY 12 HRS (375 MG TWICE DAILY/25 MG/KG/DAY)
     Route: 065
  2. NAPROXEN [Suspect]
     Active Substance: NAPROXEN
     Indication: Pyrexia
  3. PIPERACILLIN SODIUM\TAZOBACTAM SODIUM [Concomitant]
     Active Substance: PIPERACILLIN SODIUM\TAZOBACTAM SODIUM
     Indication: Influenza like illness
     Dosage: 4.5 GRAM
     Route: 042

REACTIONS (6)
  - Reye^s syndrome [Recovered/Resolved]
  - Acute kidney injury [Recovered/Resolved]
  - Metabolic acidosis [Recovered/Resolved]
  - Hyperammonaemia [Recovered/Resolved]
  - Cerebral disorder [Recovered/Resolved]
  - Overdose [Recovered/Resolved]
